FAERS Safety Report 13066932 (Version 1)
Quarter: 2016Q4

REPORT INFORMATION
  Report Type: Spontaneous
  Country: US (occurrence: US)
  Receive Date: 20161227
  Receipt Date: 20161227
  Transmission Date: 20170207
  Serious: Yes (Other)
  Sender: FDA-Public Use
  Company Number: US-ASTRAZENECA-2016SF34058

PATIENT
  Age: 64 Year
  Sex: Female
  Weight: 44.8 kg

DRUGS (19)
  1. PRILOSEC [Suspect]
     Active Substance: OMEPRAZOLE MAGNESIUM
     Route: 048
     Dates: start: 20150714
  2. CLONIDINE. [Concomitant]
     Active Substance: CLONIDINE
     Route: 048
     Dates: start: 20160127
  3. ARIMIDEX [Suspect]
     Active Substance: ANASTROZOLE
     Route: 048
  4. CHANTIX [Suspect]
     Active Substance: VARENICLINE TARTRATE
     Dosage: 14 ON DAYS 1 TO 7
     Route: 065
  5. CHANTIX [Suspect]
     Active Substance: VARENICLINE TARTRATE
     Dosage: 42 ON FOLLOWING DAYS
     Route: 065
  6. ACYCLOVIR. [Concomitant]
     Active Substance: ACYCLOVIR
     Dosage: TAKES 2 DF DAILY
     Dates: start: 20151215
  7. OXYCODONE [Concomitant]
     Active Substance: OXYCODONE
     Indication: PAIN
     Dosage: 10-325 MG TAKE 1 TO 2 TABLETS EVERY 4 TO 6 HOURSAS NEEDED
  8. VALACICLOVIR [Concomitant]
     Active Substance: VALACYCLOVIR HYDROCHLORIDE
     Dosage: 1 GM
     Route: 048
  9. GABAPENTIN. [Concomitant]
     Active Substance: GABAPENTIN
     Dosage: 1 TAB 3 TIMES DAILY
     Route: 048
     Dates: start: 20160127
  10. HYDROCODONE BITARTRATE AND ACETAMINOPHEN [Concomitant]
     Active Substance: ACETAMINOPHEN\HYDROCODONE BITARTRATE
     Indication: PAIN
     Dosage: 10-325 MG ORAL TABLET 3 TIMES DAILY, EVERY 3 HOURS
     Route: 048
     Dates: start: 20150107
  11. METHOCARBAMOL. [Concomitant]
     Active Substance: METHOCARBAMOL
     Route: 048
     Dates: start: 20160101
  12. NIFEDIPINE. [Concomitant]
     Active Substance: NIFEDIPINE
     Dosage: OSMOTIC RELEASE, EXTENDED RELEASE
     Route: 048
     Dates: start: 20140518
  13. NYSTATIN. [Concomitant]
     Active Substance: NYSTATIN
     Dosage: 100000 UNIT/ML/THROAT SUSPENSION, SWISH AND SWALLOW 10 ML UPTO 5 TIMES DAILY
     Route: 048
     Dates: start: 20140518
  14. ASPIRIN. [Concomitant]
     Active Substance: ASPIRIN
     Dosage: TAKES 2 DF DAILY
     Dates: start: 20140714
  15. CARVEDILOL. [Concomitant]
     Active Substance: CARVEDILOL
     Route: 048
     Dates: start: 20141007
  16. LEVOTHYROXINE SODIUM. [Concomitant]
     Active Substance: LEVOTHYROXINE SODIUM
     Route: 048
  17. LOSARTAN POTASSIUM. [Concomitant]
     Active Substance: LOSARTAN POTASSIUM
     Route: 048
     Dates: start: 20150901
  18. OXYCONTIN [Concomitant]
     Active Substance: OXYCODONE HYDROCHLORIDE
     Dosage: TAKE 1 TABLET EVERY 8 HOURS
     Route: 048
  19. VITAMIN D3 [Concomitant]
     Active Substance: CHOLECALCIFEROL
     Dosage: 1000 UNIT
     Route: 048
     Dates: start: 20150820

REACTIONS (13)
  - Papillary thyroid cancer [Unknown]
  - Weight decreased [Unknown]
  - Lung adenocarcinoma [Unknown]
  - Drug intolerance [Unknown]
  - Foot fracture [Unknown]
  - Bone loss [Unknown]
  - Anaemia macrocytic [Unknown]
  - Malabsorption [Unknown]
  - Sternal fracture [None]
  - Malignant neoplasm progression [Unknown]
  - Fracture pain [Unknown]
  - Ankle fracture [None]
  - Large intestine polyp [Unknown]
